FAERS Safety Report 7746163-1 (Version None)
Quarter: 2011Q3

REPORT INFORMATION
  Report Type: 
  Country: None (occurrence: None)
  Receive Date: 20110913
  Receipt Date: 20110224
  Transmission Date: 20111222
  Serious: Yes (Hospitalization, Disabling)
  Sender: FDA-Public Use
  Company Number: FR-ROCHE-661488

PATIENT
  Sex: Female
  Weight: 54 kg

DRUGS (17)
  1. LEVOTHYROXINE SODIQUE [Concomitant]
  2. ESOMEPRAZOLE SODIUM [Concomitant]
  3. BACTRIM [Concomitant]
     Dates: start: 20090813
  4. BLINDED BEVACIZUMAB [Suspect]
     Indication: GLIOBLASTOMA
     Dosage: FORM: VIAL, DOSE BLINDED
     Route: 042
     Dates: start: 20090813
  5. ZOLPIDEM [Concomitant]
  6. ZOLPIDEM [Concomitant]
  7. PAROXETINE HCL [Concomitant]
     Dates: start: 20090813, end: 20091006
  8. HEXETIDINE [Concomitant]
     Dates: start: 20090910, end: 20091002
  9. TEMOZOLOMIDE [Suspect]
     Indication: GLIOBLASTOMA
     Dosage: LAST DOSE PRIOR TO EVENT ON 23 AUG 2009, FORM: GELULES,
     Route: 048
     Dates: start: 20090813
  10. TEMOZOLOMIDE [Suspect]
     Dosage: FREQUENCY: QD.LAST DOSE PRIOR TO EVENT ON 25 SEP 2009,FORM: GELULES,THERAPY PERMANENTLY DISCONTINUED
     Route: 048
     Dates: end: 20091028
  11. CLORETO DE POTASSIO [Concomitant]
     Dates: start: 20091019
  12. ESOMEPRAZOLE SODIUM [Concomitant]
  13. BLINDED BEVACIZUMAB [Suspect]
     Dosage: DOSAGE FORM; VIALS.LAST DOSE PRIOR TO EVENT ON 24 SEP 2009, THERAPY TEMPORARILY INTERRUPTED.
     Route: 042
     Dates: end: 20091021
  14. ALPRAZOLAM [Concomitant]
     Dates: start: 20090825, end: 20091006
  15. FLUCONAZOLE [Concomitant]
     Dates: start: 20090925, end: 20091002
  16. DOMPERIDONE [Concomitant]
     Dates: start: 20090818, end: 20091006
  17. POLYETHYLENE GLYCOL [Concomitant]
     Dates: end: 20091022

REACTIONS (4)
  - OESOPHAGEAL ULCER [None]
  - PANCYTOPENIA [None]
  - SOMNOLENCE [None]
  - VOMITING [None]
